FAERS Safety Report 10759383 (Version 1)
Quarter: 2015Q1

REPORT INFORMATION
  Report Type: Spontaneous
  Country: IN (occurrence: IN)
  Receive Date: 20150203
  Receipt Date: 20150203
  Transmission Date: 20150721
  Serious: Yes (Congenital Anomaly)
  Sender: FDA-Public Use
  Company Number: IN-IMPAX LABORATORIES, INC-2015-IPXL-00095

PATIENT
  Age: 3 Month
  Sex: Male
  Weight: 3.8 kg

DRUGS (1)
  1. DIVALPROEX SODIUM ER [Suspect]
     Active Substance: DIVALPROEX SODIUM
     Indication: FOETAL EXPOSURE DURING PREGNANCY
     Dosage: 800 MG, DAILY
     Route: 064

REACTIONS (1)
  - Foetal anticonvulsant syndrome [Unknown]
